FAERS Safety Report 11632779 (Version 1)
Quarter: 2015Q4

REPORT INFORMATION
  Report Type: Spontaneous
  Country: IT (occurrence: FR)
  Receive Date: 20151015
  Receipt Date: 20151015
  Transmission Date: 20160304
  Serious: Yes (Hospitalization)
  Sender: FDA-Public Use
  Company Number: FR-FRI-1000080240

PATIENT
  Age: 38 Year
  Sex: Female

DRUGS (3)
  1. ODDIBIL [Suspect]
     Active Substance: HERBALS
     Indication: URINARY TRACT INFECTION
     Route: 048
     Dates: start: 20150425, end: 20150518
  2. MONUROL [Suspect]
     Active Substance: FOSFOMYCIN TROMETHAMINE
     Dosage: 1 DF
     Route: 048
     Dates: start: 20150425, end: 20150425
  3. MONUROL [Suspect]
     Active Substance: FOSFOMYCIN TROMETHAMINE
     Indication: URINARY TRACT INFECTION
     Dosage: 1 DF
     Route: 048
     Dates: start: 20150423, end: 20150423

REACTIONS (11)
  - Inflammation [None]
  - Self-medication [None]
  - Product use issue [Recovered/Resolved]
  - Decreased appetite [None]
  - Asthenia [None]
  - Cholelithiasis [None]
  - Pyelonephritis acute [None]
  - Acute kidney injury [Recovering/Resolving]
  - Nausea [None]
  - Renal tubular disorder [Recovering/Resolving]
  - Product use issue [Recovered/Resolved]

NARRATIVE: CASE EVENT DATE: 20150423
